FAERS Safety Report 7862820-0 (Version None)
Quarter: 2011Q4

REPORT INFORMATION
  Report Type: 
  Country: None (occurrence: None)
  Receive Date: 20111027
  Receipt Date: 20111020
  Transmission Date: 20120403
  Serious: Yes (Life-Threatening, Hospitalization, Other)
  Sender: FDA-Public Use
  Company Number: US-B.I. PHARMACEUTICALS,INC./RIDGEFIELD-2011-DE-05967GD

PATIENT
  Age: 21 Year
  Sex: Female

DRUGS (13)
  1. ALLOPURINOL [Suspect]
     Indication: BLOOD URIC ACID INCREASED
  2. AMIKACIN [Concomitant]
     Indication: SYSTEMIC LUPUS ERYTHEMATOSUS
     Route: 042
  3. MICONAZOLE [Concomitant]
     Indication: VULVOVAGINAL MYCOTIC INFECTION
  4. MELOXICAM [Suspect]
  5. VANCOMYCIN HCL [Concomitant]
     Indication: SYSTEMIC LUPUS ERYTHEMATOSUS
  6. PREDNISONE [Suspect]
     Indication: SYSTEMIC LUPUS ERYTHEMATOSUS
  7. IMMUNE GLOBULIN (HUMAN) [Concomitant]
     Indication: SYSTEMIC LUPUS ERYTHEMATOSUS
     Route: 042
  8. CIPROFLOXACIN [Suspect]
     Indication: URINARY TRACT INFECTION
  9. IMMUNE GLOBULIN (HUMAN) [Concomitant]
     Indication: HAEMOLYTIC ANAEMIA
  10. TOBRAMYCIN [Concomitant]
     Dosage: ROUTE: OPHTHALMIC
  11. CIPROFLOXACIN [Suspect]
     Indication: NOSOCOMIAL INFECTION
  12. AMOXICILLIN AND CLAVULANATE POTASSIUM [Concomitant]
  13. DIPHENHYDRAMINE HCL [Concomitant]
     Indication: PRURITUS
     Route: 061

REACTIONS (12)
  - VOMITING [None]
  - URINARY TRACT INFECTION [None]
  - TOXIC EPIDERMAL NECROLYSIS [None]
  - VULVOVAGINAL MYCOTIC INFECTION [None]
  - ARTHRALGIA [None]
  - PERICARDIAL EFFUSION [None]
  - PYREXIA [None]
  - DECREASED APPETITE [None]
  - TACHYCARDIA [None]
  - ACUTE RESPIRATORY DISTRESS SYNDROME [None]
  - NOSOCOMIAL INFECTION [None]
  - TRANSAMINASES INCREASED [None]
